FAERS Safety Report 5780148-X (Version None)
Quarter: 2008Q2

REPORT INFORMATION
  Report Type: 
  Country: None (occurrence: None)
  Receive Date: 20080620
  Receipt Date: 20060610
  Transmission Date: 20081010
  Serious: Yes (Other)
  Sender: FDA-Public Use
  Company Number: US-BAYER-200825349NA

PATIENT
  Age: 41 Year
  Sex: Female
  Weight: 69 kg

DRUGS (3)
  1. MAGNEVIST [Suspect]
     Indication: NUCLEAR MAGNETIC RESONANCE IMAGING ABDOMINAL
     Dosage: AS USED: 14 ML
     Route: 042
     Dates: start: 20080610, end: 20080610
  2. VITAMIN [Concomitant]
  3. VALIUM [Concomitant]
     Route: 048
     Dates: start: 20080610

REACTIONS (2)
  - DYSPNOEA [None]
  - SWOLLEN TONGUE [None]
